FAERS Safety Report 17774993 (Version 1)
Quarter: 2020Q2

REPORT INFORMATION
  Report Type: Report from Study
  Country: US (occurrence: US)
  Receive Date: 20200513
  Receipt Date: 20200513
  Transmission Date: 20200714
  Serious: Yes (Hospitalization, Other)
  Sender: FDA-Public Use
  Company Number: US-ASTELLAS-2020US004227

PATIENT
  Age: 68 Year
  Sex: Male

DRUGS (3)
  1. ENZALUTAMIDE [Suspect]
     Active Substance: ENZALUTAMIDE
     Indication: PROSTATE CANCER
     Route: 048
     Dates: start: 201910
  2. ENZALUTAMIDE [Suspect]
     Active Substance: ENZALUTAMIDE
     Route: 048
     Dates: start: 20200203
  3. ENZALUTAMIDE [Suspect]
     Active Substance: ENZALUTAMIDE
     Indication: ILL-DEFINED DISORDER
     Route: 048
     Dates: start: 201907

REACTIONS (8)
  - Balance disorder [Recovered/Resolved]
  - Restless legs syndrome [Recovered/Resolved]
  - Fall [Recovered/Resolved]
  - Parkinsonism [Unknown]
  - Hemiparesis [Recovered/Resolved]
  - Fall [Unknown]
  - Feeling abnormal [Recovered/Resolved]
  - Underdose [Recovered/Resolved]

NARRATIVE: CASE EVENT DATE: 201912
